FAERS Safety Report 6291736-9 (Version None)
Quarter: 2009Q3

REPORT INFORMATION
  Report Type: 
  Country: None (occurrence: None)
  Receive Date: 20090730
  Receipt Date: 20090721
  Transmission Date: 20100115
  Serious: Yes (Hospitalization, Disabling)
  Sender: FDA-Public Use
  Company Number: PHHO2009US06456

PATIENT
  Sex: Male

DRUGS (1)
  1. RAD 666 RAD+TAB [Suspect]
     Indication: LIVER TRANSPLANT
     Dosage: 0.75 MG
     Route: 048
     Dates: start: 20090326, end: 20090522

REACTIONS (5)
  - FASCIAL INFECTION [None]
  - HERNIA REPAIR [None]
  - INCISIONAL HERNIA [None]
  - WOUND CLOSURE [None]
  - WOUND DEHISCENCE [None]
